FAERS Safety Report 8190917-7 (Version None)
Quarter: 2012Q1

REPORT INFORMATION
  Report Type: 
  Country: None (occurrence: None)
  Receive Date: 20120307
  Receipt Date: 20120228
  Transmission Date: 20120608
  Serious: Yes (Hospitalization)
  Sender: FDA-Public Use
  Company Number: US-BAYER-2011-080601

PATIENT
  Age: 18 Year
  Sex: Female
  Weight: 63.492 kg

DRUGS (14)
  1. PHENERGAN [Concomitant]
     Indication: NAUSEA
  2. BENTYL [Concomitant]
  3. DICYCLOMINE [Concomitant]
     Dosage: 10 MG, UNK
  4. LIBRAX [Concomitant]
  5. CHLORD/CLIPI [Concomitant]
  6. YAZ [Suspect]
     Indication: ACNE
  7. ST. JOHN'S WORT [Concomitant]
  8. YAZ [Suspect]
     Indication: PREMENSTRUAL SYNDROME
     Dosage: UNK
     Route: 048
     Dates: start: 20070326, end: 20090726
  9. ALPRAZOLAM [Concomitant]
     Dosage: 0.5 MG, UNK
  10. AZITHROMYCIN [Concomitant]
     Dosage: 250 MG, UNK
  11. ASCORBIC ACID [Concomitant]
  12. PROTONIX [Concomitant]
  13. PROMETHAZINE [Concomitant]
     Dosage: 25 MG, UNK
  14. PHENERGAN [Concomitant]
     Indication: VOMITING
     Dosage: UNK
     Dates: start: 20040101

REACTIONS (8)
  - PSYCHOLOGICAL TRAUMA [None]
  - GALLBLADDER DISORDER [None]
  - EMOTIONAL DISTRESS [None]
  - PAIN [None]
  - MALAISE [None]
  - CHOLECYSTITIS CHRONIC [None]
  - INJURY [None]
  - ANXIETY [None]
